FAERS Safety Report 9908160 (Version 1)
Quarter: 2013Q2

REPORT INFORMATION
  Report Type: Spontaneous
  Country: US (occurrence: None)
  Receive Date: 20130305
  Receipt Date: 20130305
  Transmission Date: 20140414
  Serious: Yes (Other)
  Sender: FDA-Public Use
  Company Number: 163-21880-12071393

PATIENT
  Age: 68 Year
  Sex: Male

DRUGS (2)
  1. REVLIMID (LENALIDOMIDE) (CAPSULES) [Suspect]
     Indication: PLASMA CELL MYELOMA
     Route: 048
     Dates: start: 20120413
  2. VELCADE (BORTEZOMIB) (UNKNOWN) [Concomitant]

REACTIONS (3)
  - Rash [None]
  - Muscle spasms [None]
  - Myalgia [None]
